FAERS Safety Report 5046273-6 (Version None)
Quarter: 2006Q3

REPORT INFORMATION
  Report Type: 
  Country: None (occurrence: None)
  Receive Date: 20060710
  Receipt Date: 20060629
  Transmission Date: 20061208
  Serious: Yes (Hospitalization)
  Sender: FDA-Public Use
  Company Number: BR-JNJFOC-20060701195

PATIENT
  Age: 6 Decade
  Sex: Female
  Weight: 70 kg

DRUGS (6)
  1. GYNO DAKTARIN [Suspect]
     Indication: PROPHYLAXIS
     Dosage: SPORADIC USE
     Route: 067
  2. AMPICILLIN [Suspect]
     Indication: DRUG USE FOR UNKNOWN INDICATION
  3. CLINDAMYCIN HCL [Suspect]
     Indication: DRUG USE FOR UNKNOWN INDICATION
     Route: 067
  4. ASCORBIC ACID [Concomitant]
  5. VITAMIN E [Concomitant]
  6. ATENOLOL [Concomitant]
     Dosage: 3-4 YEARS

REACTIONS (2)
  - BREAST CANCER [None]
  - VAGINAL INFECTION [None]
